FAERS Safety Report 16443156 (Version 1)
Quarter: 2019Q2

REPORT INFORMATION
  Report Type: Other
  Country: ES (occurrence: ES)
  Receive Date: 20190617
  Receipt Date: 20190617
  Transmission Date: 20190711
  Serious: Yes (Hospitalization)
  Sender: FDA-Public Use
  Company Number: ES-CELLTRION INC.-2019ES021898

PATIENT

DRUGS (16)
  1. HIDROFEROL [Concomitant]
     Active Substance: CALCIFEDIOL
     Dosage: 0.266MCG/MES
     Route: 048
     Dates: start: 20180927
  2. TRUXIMA [Suspect]
     Active Substance: RITUXIMAB-ABBS
     Dosage: 100 MG/M2
     Route: 051
     Dates: start: 20190506
  3. AMOXICILINA + AC.CLAVULANICO [Concomitant]
     Active Substance: AMOXICILLIN\CLAVULANIC ACID
     Dosage: CADA8H
     Route: 048
     Dates: start: 20190501, end: 20190511
  4. OMEPRAZOL ABDRUG [Concomitant]
     Dosage: 40MG/24H
     Route: 048
     Dates: start: 20190205
  5. TRUXIMA [Suspect]
     Active Substance: RITUXIMAB-ABBS
     Indication: CHRONIC LYMPHOCYTIC LEUKAEMIA
     Dosage: 375 MG/M2
     Route: 051
     Dates: start: 20190314
  6. PALEXIA [Concomitant]
     Active Substance: TAPENTADOL HYDROCHLORIDE
     Dosage: UNK
     Dates: start: 20190421
  7. DINISOR [Concomitant]
     Dosage: 120MG/12H
     Route: 048
     Dates: start: 20160112
  8. BETAHISTINA [BETAHISTINE] [Concomitant]
     Dosage: PRN
     Route: 048
     Dates: start: 20180908
  9. BROMURO DE IPRATROPIO [Concomitant]
     Dosage: 500MCG/12H
     Route: 045
     Dates: start: 20190501, end: 20190511
  10. BISOPROLOL [Concomitant]
     Active Substance: BISOPROLOL
     Dosage: 2.5MG/24H
     Route: 048
     Dates: start: 20180731
  11. PROLIA [Concomitant]
     Active Substance: DENOSUMAB
     Dosage: 60MG/24S
     Dates: start: 20181129
  12. VALIUM [Concomitant]
     Active Substance: DIAZEPAM
     Dosage: 10MG/24H
     Dates: start: 20190421
  13. FUROSEMIDA [FUROSEMIDE] [Concomitant]
     Dosage: 40MG/24H
     Route: 048
  14. LUDIOMIL [MAPROTILINE HYDROCHLORIDE] [Concomitant]
     Dosage: 75MG/24H
     Route: 048
     Dates: start: 20160512
  15. PARACETAMOL [Concomitant]
     Active Substance: ACETAMINOPHEN
     Dosage: PRN
     Dates: start: 2018
  16. ADIRO [Concomitant]
     Active Substance: ASPIRIN
     Dosage: 100MG/24H
     Route: 048
     Dates: start: 20190424

REACTIONS (4)
  - Drug-induced liver injury [Recovered/Resolved]
  - Underdose [Unknown]
  - Hepatitis [Recovered/Resolved]
  - Product use issue [Unknown]

NARRATIVE: CASE EVENT DATE: 20190315
